FAERS Safety Report 21008366 (Version 2)
Quarter: 2023Q1

REPORT INFORMATION
  Report Type: Spontaneous
  Country: PK (occurrence: PK)
  Receive Date: 20220627
  Receipt Date: 20230209
  Transmission Date: 20230418
  Serious: Yes (Other)
  Sender: FDA-Public Use
  Company Number: PK-PFIZER INC-2020326598

PATIENT
  Age: 29 Year
  Sex: Female

DRUGS (13)
  1. ENBREL [Suspect]
     Active Substance: ETANERCEPT
     Indication: Psoriatic arthropathy
     Dosage: 50 MG, CYCLIC (EVERY 2 WEEKS/EVERY 10TH DAY)
     Route: 058
  2. ENBREL [Suspect]
     Active Substance: ETANERCEPT
     Dosage: 50 MG EVERY 10TH DAY
     Route: 058
     Dates: start: 20220131
  3. ENBREL [Suspect]
     Active Substance: ETANERCEPT
     Dosage: 50 MG, CYCLIC (EVERY 2 WEEKS/EVERY 10TH DAY)
     Route: 058
  4. ENBREL [Suspect]
     Active Substance: ETANERCEPT
     Dosage: 50 MG, WEEKLY
     Route: 058
     Dates: start: 20221104
  5. METHOTREXATE [Concomitant]
     Active Substance: METHOTREXATE
     Dosage: 10 MG (TAKE ONE TABLET ON SUNDAY. TAKE ONE TABLET ON MONDAY)
     Route: 048
  6. FOLIC ACID [Concomitant]
     Active Substance: FOLIC ACID
     Dosage: 5 MG, 1X/DAY
     Route: 048
  7. ACECLOFENAC [Concomitant]
     Active Substance: ACECLOFENAC
     Dosage: 100 MG, 1X/DAY (TAKE ONE IN EVEINING)
     Route: 048
  8. LEFLUNOMIDE [Concomitant]
     Active Substance: LEFLUNOMIDE
     Dosage: 20 MG, 1X/DAY
     Route: 048
  9. NIMS [Concomitant]
     Indication: Pain
  10. Ca c 1000 [Concomitant]
  11. Sunny d [Concomitant]
     Dosage: 2 LAC IV 1 AFTER EVERY MONTH
     Route: 042
  12. Paradol [Concomitant]
     Dosage: 2 TABLETS AS PER NEED
  13. NUBEROL [Concomitant]
     Dosage: 2 TABLETS AS PER NEED

REACTIONS (12)
  - Immunosuppression [Unknown]
  - Off label use [Unknown]
  - Skin lesion [Unknown]
  - Pain in extremity [Unknown]
  - Deformity [Unknown]
  - Nail pitting [Unknown]
  - Platelet count increased [Unknown]
  - Red blood cell sedimentation rate increased [Unknown]
  - Pain [Unknown]
  - Arthralgia [Unknown]
  - Rash [Unknown]
  - Therapeutic product effect incomplete [Unknown]

NARRATIVE: CASE EVENT DATE: 20220131
